FAERS Safety Report 11029497 (Version 1)
Quarter: 2015Q2

REPORT INFORMATION
  Report Type: Spontaneous
  Country: US (occurrence: None)
  Receive Date: 20150413
  Receipt Date: 20150413
  Transmission Date: 20150821
  Serious: Yes (Death, Hospitalization, Other)
  Sender: FDA-Public Use
  Company Number: ADR-2015-00672

PATIENT
  Age: 66 Year
  Sex: Male

DRUGS (4)
  1. ENOXAPARIN [Suspect]
     Active Substance: ENOXAPARIN
  2. BACLOFEN INTRATHECAL (2000 MCG/ML) [Suspect]
     Active Substance: BACLOFEN
     Indication: MUSCLE SPASTICITY
  3. DEXAMETHASONE. [Suspect]
     Active Substance: DEXAMETHASONE
  4. CITALOPRAM [Suspect]
     Active Substance: CITALOPRAM HYDROBROMIDE

REACTIONS (1)
  - Death [None]

NARRATIVE: CASE EVENT DATE: 20141104
